FAERS Safety Report 10008020 (Version 8)
Quarter: 2014Q3

REPORT INFORMATION
  Report Type: Report from Study
  Country: CA (occurrence: CA)
  Receive Date: 20140313
  Receipt Date: 20140724
  Transmission Date: 20150326
  Serious: Yes (Death, Other)
  Sender: FDA-Public Use
  Company Number: PHHY2013CA132012

PATIENT
  Age: 60 Year
  Sex: Male

DRUGS (1)
  1. SANDOSTATIN LAR DEPOT [Suspect]
     Active Substance: OCTREOTIDE ACETATE
     Indication: NEUROENDOCRINE TUMOUR
     Dosage: 30 MG, EVERY 4 WEEKS
     Route: 030
     Dates: start: 20130919, end: 20140528

REACTIONS (15)
  - Hypercalcaemia [Unknown]
  - Haemoglobin decreased [Unknown]
  - Fatigue [Unknown]
  - Bone pain [Unknown]
  - Death [Fatal]
  - Abdominal pain [Unknown]
  - Hypotension [Unknown]
  - Blood pressure increased [Unknown]
  - Bone cancer [Unknown]
  - Second primary malignancy [Unknown]
  - Pulmonary oedema [Unknown]
  - Back pain [Unknown]
  - Hypokinesia [Unknown]
  - Terminal state [Unknown]
  - Musculoskeletal pain [Unknown]

NARRATIVE: CASE EVENT DATE: 20131114
